FAERS Safety Report 11707314 (Version 1)
Quarter: 2015Q4

REPORT INFORMATION
  Report Type: Report from Study
  Country: US (occurrence: US)
  Receive Date: 20151106
  Receipt Date: 20151106
  Transmission Date: 20160304
  Serious: No
  Sender: FDA-Public Use
  Company Number: US-CELGENEUS-USA-2015095631

PATIENT

DRUGS (1)
  1. REVLIMID [Suspect]
     Active Substance: LENALIDOMIDE
     Indication: PRODUCT USED FOR UNKNOWN INDICATION
     Dosage: 11.25 MILLIGRAM
     Route: 048

REACTIONS (14)
  - Adverse drug reaction [Unknown]
  - Adverse event [Unknown]
  - Gastric infection [Unknown]
  - Neuropathy peripheral [Unknown]
  - Apathy [Unknown]
  - Coordination abnormal [Unknown]
  - Cognitive disorder [Unknown]
  - Constipation [Unknown]
  - Fall [Unknown]
  - Emotional disorder [Unknown]
  - Functional gastrointestinal disorder [Unknown]
  - Disturbance in attention [Unknown]
  - Motor dysfunction [Unknown]
  - Memory impairment [Unknown]
